FAERS Safety Report 8403841-9 (Version None)
Quarter: 2012Q2

REPORT INFORMATION
  Report Type: 
  Country: None (occurrence: None)
  Receive Date: 20120601
  Receipt Date: 20120521
  Transmission Date: 20120825
  Serious: Yes (Other)
  Sender: FDA-Public Use
  Company Number: DE-MYLANLABS-2012S1010300

PATIENT
  Age: 91 Year
  Sex: Male
  Weight: 57 kg

DRUGS (2)
  1. MIRTAZAPINE [Suspect]
     Indication: PRODUCT USED FOR UNKNOWN INDICATION
     Dosage: 1 X 15 MG
     Route: 048
  2. LORAZEPAM [Concomitant]
     Indication: PRODUCT USED FOR UNKNOWN INDICATION
     Route: 048

REACTIONS (8)
  - PRE-EXISTING CONDITION IMPROVED [None]
  - BLOOD PRESSURE INCREASED [None]
  - MEDICATION ERROR [None]
  - RESTLESSNESS [None]
  - SWELLING FACE [None]
  - SPEECH DISORDER [None]
  - TREMOR [None]
  - PAIN [None]
